FAERS Safety Report 7608437-4 (Version None)
Quarter: 2011Q3

REPORT INFORMATION
  Report Type: 
  Country: None (occurrence: None)
  Receive Date: 20110714
  Receipt Date: 20110701
  Transmission Date: 20111222
  Serious: No
  Sender: FDA-Public Use
  Company Number: US-B.I. PHARMACEUTICALS,INC./RIDGEFIELD-2011-BP-16819BP

PATIENT
  Sex: Female

DRUGS (6)
  1. CARVEDILOL [Concomitant]
     Indication: CARDIAC DISORDER
  2. ISOSORBIDE MONONITRATE [Concomitant]
     Indication: CARDIAC DISORDER
  3. CRESTOR [Concomitant]
     Indication: BLOOD CHOLESTEROL INCREASED
  4. PRADAXA [Suspect]
     Indication: ATRIAL FIBRILLATION
     Dosage: 300 MG
     Route: 048
     Dates: start: 20110607, end: 20110629
  5. AMIODARONE HCL [Concomitant]
     Indication: CARDIAC DISORDER
  6. DIOVAN [Concomitant]
     Indication: HYPERTENSION

REACTIONS (1)
  - OEDEMA PERIPHERAL [None]
